FAERS Safety Report 5600965-6 (Version None)
Quarter: 2008Q1

REPORT INFORMATION
  Report Type: 
  Country: None (occurrence: None)
  Receive Date: 20080124
  Receipt Date: 20080118
  Transmission Date: 20080703
  Serious: Yes (Hospitalization, Other)
  Sender: FDA-Public Use
  Company Number: PHBS2007IE18508

PATIENT
  Sex: Female

DRUGS (1)
  1. LAMISIL [Suspect]
     Route: 048

REACTIONS (2)
  - RENAL DISORDER [None]
  - SKIN DISORDER [None]
